FAERS Safety Report 4450496-4 (Version None)
Quarter: 2004Q3

REPORT INFORMATION
  Report Type: 
  Country: None (occurrence: None)
  Receive Date: 20040804
  Receipt Date: 20040413
  Transmission Date: 20050211
  Serious: Yes (Other)
  Sender: FDA-Public Use
  Company Number: 205876

PATIENT
  Age: 48 Year
  Sex: Female

DRUGS (2)
  1. HERCEPTIN [Suspect]
     Indication: BREAST CANCER
     Dosage: 230 MG, INTRAVENOUS
     Route: 042
  2. VINORELBINE (VINORELBINE) [Concomitant]

REACTIONS (1)
  - EJECTION FRACTION DECREASED [None]
